FAERS Safety Report 9094619 (Version 2)
Quarter: 2013Q2

REPORT INFORMATION
  Report Type: Spontaneous
  Country: US (occurrence: US)
  Receive Date: 20130219
  Receipt Date: 20130408
  Transmission Date: 20140414
  Serious: Yes (Hospitalization, Other)
  Sender: FDA-Public Use
  Company Number: US-BAXTER-2013BAX005359

PATIENT
  Age: 56 Year
  Sex: Female

DRUGS (2)
  1. DIANEAL LOW CALCIUM [Suspect]
     Indication: PERITONEAL DIALYSIS
     Route: 033
  2. DIANEAL LOW CALCIUM [Suspect]
     Indication: PERITONEAL DIALYSIS
     Route: 033

REACTIONS (6)
  - Cholecystitis infective [Recovering/Resolving]
  - Cholelithiasis [Recovering/Resolving]
  - Peritonitis bacterial [Recovering/Resolving]
  - Procedural complication [Unknown]
  - Peritoneal perforation [Unknown]
  - Procedural pain [Recovered/Resolved]
